FAERS Safety Report 19519664 (Version 1)
Quarter: 2021Q3

REPORT INFORMATION
  Report Type: Spontaneous
  Country: US (occurrence: US)
  Receive Date: 20210712
  Receipt Date: 20210712
  Transmission Date: 20211014
  Serious: Yes (Hospitalization)
  Sender: FDA-Public Use
  Company Number: US-SA-2021SA225563

PATIENT
  Age: 67 Year
  Sex: Male

DRUGS (9)
  1. METOPROLOL. [Concomitant]
     Active Substance: METOPROLOL
  2. DUPIXENT [Suspect]
     Active Substance: DUPILUMAB
     Indication: DERMATITIS ATOPIC
     Dosage: 300 MG, QOW, 300MG (DURATION OF TREATMENT IS 2 MONTHS)
  3. ASPIRIN [ACETYLSALICYLIC ACID] [Concomitant]
     Active Substance: ASPIRIN
  4. MONTELUKAST [Concomitant]
     Active Substance: MONTELUKAST SODIUM
  5. TRILAFON [Concomitant]
     Active Substance: PERPHENAZINE
  6. CARVEDILOL. [Concomitant]
     Active Substance: CARVEDILOL
  7. DIAZEPAM. [Concomitant]
     Active Substance: DIAZEPAM
  8. LUNESTA [Concomitant]
     Active Substance: ESZOPICLONE
  9. ELIQUIS [Concomitant]
     Active Substance: APIXABAN

REACTIONS (4)
  - Paraesthesia [Unknown]
  - Heart rate increased [Unknown]
  - Peripheral swelling [Unknown]
  - Pain in extremity [Unknown]

NARRATIVE: CASE EVENT DATE: 20210704
